FAERS Safety Report 26010975 (Version 1)
Quarter: 2025Q4

REPORT INFORMATION
  Report Type: Spontaneous
  Country: JP (occurrence: JP)
  Receive Date: 20251107
  Receipt Date: 20251107
  Transmission Date: 20260117
  Serious: Yes (Life-Threatening, Other)
  Sender: MYLAN
  Company Number: JP-VIATRISJAPAN-2025M1092922AA

PATIENT
  Age: 8 Decade
  Sex: Female

DRUGS (4)
  1. CELECOXIB [Suspect]
     Active Substance: CELECOXIB
     Indication: Product used for unknown indication
     Dosage: UNK
  2. CELECOXIB [Suspect]
     Active Substance: CELECOXIB
     Dosage: UNK
     Route: 048
  3. CELECOXIB [Suspect]
     Active Substance: CELECOXIB
     Dosage: UNK
     Route: 048
  4. CELECOXIB [Suspect]
     Active Substance: CELECOXIB
     Dosage: UNK

REACTIONS (2)
  - Anaphylactic shock [Unknown]
  - Drug eruption [Unknown]

NARRATIVE: CASE EVENT DATE: 20190701
